FAERS Safety Report 11647845 (Version 1)
Quarter: 2015Q4

REPORT INFORMATION
  Report Type: Spontaneous
  Country: US (occurrence: US)
  Receive Date: 20151021
  Receipt Date: 20151021
  Transmission Date: 20160304
  Serious: Yes (Hospitalization, Other)
  Sender: FDA-Public Use
  Company Number: US-ASTRAZENECA-2015SF00804

PATIENT
  Age: 814 Month
  Sex: Female
  Weight: 58.1 kg

DRUGS (6)
  1. LEVEMIR [Concomitant]
     Active Substance: INSULIN DETEMIR
     Indication: DIABETES MELLITUS
     Dosage: 10 UNITS IN THE MORNING 10 UNITS IN THE EVENING
     Route: 058
     Dates: start: 2009
  2. PRILOSEC [Suspect]
     Active Substance: OMEPRAZOLE MAGNESIUM
     Indication: GASTROOESOPHAGEAL REFLUX DISEASE
     Route: 048
     Dates: start: 199806
  3. PRILOSEC [Suspect]
     Active Substance: OMEPRAZOLE MAGNESIUM
     Indication: GASTROOESOPHAGEAL REFLUX DISEASE
     Dosage: GENERIC FOR PRILOSEC FOR THREE DAYS
     Route: 065
  4. PRILOSEC [Suspect]
     Active Substance: OMEPRAZOLE MAGNESIUM
     Indication: GASTROOESOPHAGEAL REFLUX DISEASE
     Route: 048
     Dates: start: 198909, end: 199806
  5. HUMALOG [Concomitant]
     Active Substance: INSULIN LISPRO
     Indication: DIABETES MELLITUS
     Dosage: 6 UNITS IN THE MORNING, 6 UNITS AT LUNCH, AND 6 OR 8 UNITS IN THE EVENING
     Route: 058
     Dates: start: 2009
  6. PRILOSEC [Suspect]
     Active Substance: OMEPRAZOLE MAGNESIUM
     Indication: GASTROOESOPHAGEAL REFLUX DISEASE
     Route: 048
     Dates: start: 201304

REACTIONS (7)
  - Body height decreased [Unknown]
  - Drug ineffective [Unknown]
  - Diabetes mellitus [Unknown]
  - Cataract [Unknown]
  - Off label use [Unknown]
  - Hiatus hernia [Unknown]
  - Hyperchlorhydria [Unknown]

NARRATIVE: CASE EVENT DATE: 199806
